FAERS Safety Report 20289266 (Version 6)
Quarter: 2022Q1

REPORT INFORMATION
  Report Type: Spontaneous
  Country: GB (occurrence: GB)
  Receive Date: 20220104
  Receipt Date: 20220214
  Transmission Date: 20220423
  Serious: Yes (Life-Threatening, Other)
  Sender: FDA-Public Use
  Company Number: GB-MHRA-ADR 26280447

PATIENT
  Age: 63 Year
  Sex: Female

DRUGS (8)
  1. LEVOBUPIVACAINE [Suspect]
     Active Substance: LEVOBUPIVACAINE
     Indication: Anaesthesia
     Dosage: SINGLE
     Route: 058
     Dates: start: 20211129, end: 20211129
  2. CHLORAPREP [Suspect]
     Active Substance: CHLORHEXIDINE GLUCONATE\ISOPROPYL ALCOHOL
     Indication: Anaesthesia
     Route: 065
     Dates: start: 20211129, end: 20211129
  3. FENTANYL CITRATE [Suspect]
     Active Substance: FENTANYL CITRATE
     Indication: Anaesthesia
     Route: 042
     Dates: start: 20211129, end: 20211129
  4. PROPOFOL [Suspect]
     Active Substance: PROPOFOL
     Indication: Anaesthesia
     Dosage: PROPOFOL 20MG/ML EMULSION FOR INJECTION/INFUSION
     Route: 042
     Dates: start: 20211129, end: 20211129
  5. GENTAMICIN [Suspect]
     Active Substance: GENTAMICIN
     Indication: Anaesthesia
     Route: 042
     Dates: start: 20211129, end: 20211129
  6. TEICOPLANIN [Suspect]
     Active Substance: TEICOPLANIN
     Indication: Anaesthesia
     Route: 042
     Dates: start: 20211129, end: 20211129
  7. DEXAMETHASONE [Suspect]
     Active Substance: DEXAMETHASONE
     Indication: Anaesthesia
     Route: 042
     Dates: start: 20211129, end: 20211129
  8. ACETAMINOPHEN [Suspect]
     Active Substance: ACETAMINOPHEN
     Indication: Anaesthesia
     Dosage: 10 TO 20 MILLILITER, SINGLE
     Route: 042
     Dates: start: 20211129, end: 20211129

REACTIONS (3)
  - Anaphylactic reaction [Recovered/Resolved]
  - Product use in unapproved indication [Unknown]
  - Off label use [Unknown]

NARRATIVE: CASE EVENT DATE: 20211129
